FAERS Safety Report 4758879-X (Version None)
Quarter: 2005Q3

REPORT INFORMATION
  Report Type: 
  Country: None (occurrence: None)
  Receive Date: 20050826
  Receipt Date: 20050815
  Transmission Date: 20060218
  Serious: Yes (Death, Other)
  Sender: FDA-Public Use
  Company Number: 2005116250

PATIENT
  Sex: Female

DRUGS (2)
  1. ZOLOFT [Suspect]
     Indication: ILL-DEFINED DISORDER
     Dosage: 100 MG
  2. SEROQUEL (QUETIAPINE FURMATE) [Concomitant]

REACTIONS (2)
  - COMPLETED SUICIDE [None]
  - DROWNING [None]
